FAERS Safety Report 6414399-8 (Version None)
Quarter: 2009Q4

REPORT INFORMATION
  Report Type: 
  Country: None (occurrence: None)
  Receive Date: 20091021
  Receipt Date: 20091013
  Transmission Date: 20100525
  Serious: Yes (Hospitalization)
  Sender: FDA-Public Use
  Company Number: GXKR2009JP11309

PATIENT
  Age: 81 Year
  Sex: Male

DRUGS (3)
  1. TICLOPIDINE HCL [Suspect]
     Dosage: 200 MG/DAY
     Dates: start: 20051004
  2. ASPIRIN [Concomitant]
  3. SIROLIMUS (SIROLIMUS) [Concomitant]

REACTIONS (5)
  - BRONCHOPNEUMONIA [None]
  - CHEST PAIN [None]
  - DRUG INEFFECTIVE [None]
  - INTERSTITIAL LUNG DISEASE [None]
  - ORGANISING PNEUMONIA [None]
